FAERS Safety Report 10076683 (Version 1)
Quarter: 2014Q2

REPORT INFORMATION
  Report Type: Spontaneous
  Country: US (occurrence: US)
  Receive Date: 20140414
  Receipt Date: 20140414
  Transmission Date: 20141212
  Serious: No
  Sender: FDA-Public Use
  Company Number: US-009507513-1404USA003430

PATIENT
  Age: 44 Year
  Sex: Male

DRUGS (4)
  1. TEMODAR [Suspect]
     Indication: ASTROCYTOMA
     Dosage: 3 CAPSULES OF 140MG AT NIGHT FOR 5 DAYS, EVERY 28 DAYS
     Route: 048
     Dates: start: 201310
  2. PHENOBARBITAL [Concomitant]
  3. VIMPAT [Concomitant]
  4. PRINIVIL [Concomitant]

REACTIONS (5)
  - Irritable bowel syndrome [Not Recovered/Not Resolved]
  - Feeling abnormal [Not Recovered/Not Resolved]
  - Gastrointestinal disorder [Not Recovered/Not Resolved]
  - Dyspepsia [Not Recovered/Not Resolved]
  - Constipation [Not Recovered/Not Resolved]
